FAERS Safety Report 6379274-6 (Version None)
Quarter: 2009Q3

REPORT INFORMATION
  Report Type: 
  Country: None (occurrence: None)
  Receive Date: 20090923
  Receipt Date: 20090923
  Transmission Date: 20100115
  Serious: Yes (Life-Threatening)
  Sender: FDA-Public Use
  Company Number: None

PATIENT
  Sex: Male
  Weight: 91.4 kg

DRUGS (11)
  1. HALOPERIDOL [Suspect]
     Indication: AGITATION
     Dosage: 2.5MG IV Q4HRS PRN
     Route: 042
     Dates: start: 20081027, end: 20081028
  2. ASPIRIN [Concomitant]
  3. INSULIN ASPART SS [Concomitant]
  4. CEFEPIME [Concomitant]
  5. CLOPIDOGREL [Concomitant]
  6. FENTANYL [Concomitant]
  7. MG SULFATE [Concomitant]
  8. ALPRAZOLAM [Concomitant]
  9. MORPHENE [Concomitant]
  10. RANITIDINE [Concomitant]
  11. HEPARIN [Concomitant]

REACTIONS (3)
  - ATRIAL FIBRILLATION [None]
  - TORSADE DE POINTES [None]
  - VENTRICULAR FIBRILLATION [None]
